FAERS Safety Report 19173407 (Version 2)
Quarter: 2021Q2

REPORT INFORMATION
  Report Type: Report from Study
  Country: US (occurrence: US)
  Receive Date: 20210423
  Receipt Date: 20210604
  Transmission Date: 20210717
  Serious: Yes (Other)
  Sender: FDA-Public Use
  Company Number: US-JNJFOC-20210434679

PATIENT
  Age: 8 Decade
  Sex: Female

DRUGS (1)
  1. TREMFYA [Suspect]
     Active Substance: GUSELKUMAB
     Indication: PSORIATIC ARTHROPATHY
     Route: 058
     Dates: start: 20210320

REACTIONS (3)
  - Psoriatic arthropathy [Recovering/Resolving]
  - Device issue [Unknown]
  - Wrong technique in product usage process [Unknown]
